FAERS Safety Report 6692933-0 (Version None)
Quarter: 2010Q2

REPORT INFORMATION
  Report Type: 
  Country: None (occurrence: None)
  Receive Date: 20100422
  Receipt Date: 20100414
  Transmission Date: 20101027
  Serious: No
  Sender: FDA-Public Use
  Company Number: US-CEPHALON-2010002204

PATIENT
  Age: 70 Year
  Sex: Female

DRUGS (3)
  1. FENTORA [Suspect]
     Indication: MIGRAINE
     Route: 002
  2. FENTORA [Suspect]
     Indication: ARTHRITIS
  3. FENTANYL-25 [Concomitant]

REACTIONS (4)
  - ABDOMINAL DISCOMFORT [None]
  - CHILLS [None]
  - DRUG PRESCRIBING ERROR [None]
  - DRUG WITHDRAWAL SYNDROME [None]
